FAERS Safety Report 9645135 (Version 1)
Quarter: 2013Q4

REPORT INFORMATION
  Report Type: Spontaneous
  Country: US (occurrence: None)
  Receive Date: 20131023
  Receipt Date: 20131023
  Transmission Date: 20140711
  Serious: No
  Sender: FDA-Public Use
  Company Number: None

PATIENT
  Age: 67 Year
  Sex: Female

DRUGS (1)
  1. ADENOSINE [Suspect]
     Indication: INVESTIGATION

REACTIONS (2)
  - Product quality issue [None]
  - Drug ineffective [None]
